FAERS Safety Report 5219852-0 (Version None)
Quarter: 2007Q1

REPORT INFORMATION
  Report Type: 
  Country: None (occurrence: None)
  Receive Date: 20070125
  Receipt Date: 20070116
  Transmission Date: 20070707
  Serious: Yes (Hospitalization)
  Sender: FDA-Public Use
  Company Number: GB-PFIZER INC-2007004907

PATIENT
  Age: 40 Year
  Sex: Male

DRUGS (6)
  1. LYRICA [Suspect]
     Indication: BACK PAIN
     Route: 048
     Dates: start: 20061127, end: 20061129
  2. BACLOFEN [Suspect]
     Indication: BACK PAIN
     Route: 048
     Dates: start: 20061127, end: 20061129
  3. AMITRIPTYLINE HCL [Concomitant]
     Indication: BACK PAIN
     Route: 048
  4. CO-CODAMOL [Concomitant]
     Indication: BACK PAIN
     Route: 048
  5. DICLOFENAC SODIUM [Concomitant]
     Indication: BACK PAIN
     Route: 048
  6. ERYTHROMYCIN [Concomitant]
     Indication: IMPAIRED GASTRIC EMPTYING
     Route: 048

REACTIONS (2)
  - CONVULSION [None]
  - DRUG WITHDRAWAL SYNDROME [None]
